FAERS Safety Report 9579941 (Version 1)
Quarter: 2013Q3

REPORT INFORMATION
  Report Type: Spontaneous
  Country: GB (occurrence: None)
  Receive Date: 20130930
  Receipt Date: 20130930
  Transmission Date: 20140515
  Serious: Yes (Other)
  Sender: FDA-Public Use
  Company Number: AUR-APL-2013-07947

PATIENT
  Age: 66 Year
  Sex: Female
  Weight: 69.85 kg

DRUGS (4)
  1. ALENDRONIC ACID (ALENDRONIC ACID) [Suspect]
     Indication: OSTEOPOROSIS
     Route: 048
  2. NARATRIPTAN ( NARATRIPTAN) [Concomitant]
  3. PROPRANOLOL ( PROPRANOLOL) [Concomitant]
  4. URSOFALX ( URSODEOXYCHOLIC ACID) [Concomitant]

REACTIONS (5)
  - Gingival pain [None]
  - Gingival inflammation [None]
  - Gingivitis [None]
  - Osteonecrosis of jaw [None]
  - Gingival injury [None]
